FAERS Safety Report 6570903-0 (Version None)
Quarter: 2010Q1

REPORT INFORMATION
  Report Type: 
  Country: None (occurrence: None)
  Receive Date: 20100203
  Receipt Date: 20100203
  Transmission Date: 20100710
  Serious: Yes (Life-Threatening)
  Sender: FDA-Public Use
  Company Number: None

PATIENT
  Sex: Male

DRUGS (1)
  1. BENZTROPINE MESYLATE [Suspect]
     Indication: ADVERSE EVENT
     Dosage: 1/2 TABLET -0.5MG- BID PO
     Route: 048
     Dates: start: 20091218, end: 20091227

REACTIONS (2)
  - CATATONIA [None]
  - PRODUCT QUALITY ISSUE [None]
